FAERS Safety Report 5270292-8 (Version None)
Quarter: 2007Q1

REPORT INFORMATION
  Report Type: 
  Country: None (occurrence: None)
  Receive Date: 20070314
  Receipt Date: 20070227
  Transmission Date: 20070707
  Serious: Yes (Other)
  Sender: FDA-Public Use
  Company Number: 2007JP000900

PATIENT
  Age: 37 Year
  Sex: Male

DRUGS (5)
  1. PROGRAF [Suspect]
     Indication: BONE MARROW TRANSPLANT
  2. METHOTREXATE (METHOTREXATE SODIUM) FORMULATION UNKNOWN [Concomitant]
  3. CYCLOSPORINE FORMULATION UNKNOWN [Concomitant]
  4. METHYLPREDNISOLONE (METHYLPRESNISOLONE) FORMULATION UNKNOWN [Concomitant]
  5. PREDNISOLONE [Concomitant]

REACTIONS (2)
  - NECROTISING RETINITIS [None]
  - VARICELLA [None]
